FAERS Safety Report 6554139-5 (Version None)
Quarter: 2010Q1

REPORT INFORMATION
  Report Type: 
  Country: None (occurrence: None)
  Receive Date: 20100125
  Receipt Date: 20100125
  Transmission Date: 20100710
  Serious: No
  Sender: FDA-Public Use
  Company Number: None

PATIENT
  Age: 64 Year
  Sex: Male
  Weight: 99.7913 kg

DRUGS (2)
  1. TYLENOL ARTHRITIS 650 MG MCNEIL CONSUMER HEALTHCARE [Suspect]
     Indication: HEADACHE
     Dosage: 2 ONCE
     Dates: start: 20100114, end: 20100114
  2. TYLENOL ARTHRITIS 650 MG MCNEIL CONSUMER HEALTHCARE [Suspect]
     Indication: MYALGIA
     Dosage: 2 ONCE
     Dates: start: 20100114, end: 20100114

REACTIONS (4)
  - ABDOMINAL PAIN UPPER [None]
  - CHILLS [None]
  - DIARRHOEA [None]
  - MALAISE [None]
